FAERS Safety Report 22374513 (Version 1)
Quarter: 2023Q2

REPORT INFORMATION
  Report Type: Spontaneous
  Country: BE (occurrence: BE)
  Receive Date: 20230526
  Receipt Date: 20230526
  Transmission Date: 20230722
  Serious: Yes (Other)
  Sender: FDA-Public Use
  Company Number: None

PATIENT
  Age: 33 Year
  Sex: Female

DRUGS (3)
  1. YASMIN [Suspect]
     Active Substance: DROSPIRENONE\ETHINYL ESTRADIOL
     Route: 048
  2. DESOGESTREL\ETHINYL ESTRADIOL [Suspect]
     Active Substance: DESOGESTREL\ETHINYL ESTRADIOL
  3. ESTRADIOL\NOMEGESTROL ACETATE [Suspect]
     Active Substance: ESTRADIOL\NOMEGESTROL ACETATE

REACTIONS (1)
  - Meningioma [Unknown]

NARRATIVE: CASE EVENT DATE: 20220718
